FAERS Safety Report 7835303-1 (Version None)
Quarter: 2011Q4

REPORT INFORMATION
  Report Type: 
  Country: None (occurrence: None)
  Receive Date: 20111024
  Receipt Date: 20111014
  Transmission Date: 20120403
  Serious: Yes (Hospitalization)
  Sender: FDA-Public Use
  Company Number: US-ASTRAZENECA-2010SE60787

PATIENT
  Age: 23744 Day
  Sex: Female
  Weight: 76.7 kg

DRUGS (14)
  1. NOVALOG [Concomitant]
     Route: 058
  2. HYDROMORPHONE HCL [Concomitant]
     Route: 048
  3. SEROQUEL [Suspect]
     Indication: DEPRESSION
     Route: 048
     Dates: start: 20070101
  4. WELLBUTRIN [Concomitant]
     Route: 048
  5. ATACAND [Suspect]
     Indication: CARDIAC DISORDER
     Route: 048
     Dates: start: 20070101
  6. ADVAIR DISKUS 100/50 [Concomitant]
     Route: 055
  7. BENADRYL [Concomitant]
     Route: 048
  8. VITAMIN D [Concomitant]
     Route: 048
  9. VALTREX [Concomitant]
     Route: 048
  10. LEXAPRO [Concomitant]
     Route: 048
  11. SLOWFE [Concomitant]
     Route: 048
  12. NEXIUM [Suspect]
     Indication: GASTROOESOPHAGEAL REFLUX DISEASE
     Route: 048
     Dates: start: 20060101
  13. SYNTHROID [Concomitant]
     Route: 048
  14. LIPITOR [Concomitant]
     Route: 048

REACTIONS (4)
  - FEMUR FRACTURE [None]
  - INCORRECT DOSE ADMINISTERED [None]
  - LOWER LIMB FRACTURE [None]
  - FALL [None]
